FAERS Safety Report 9526952 (Version 1)
Quarter: 2013Q1

REPORT INFORMATION
  Report Type: Spontaneous
  Country: US (occurrence: None)
  Receive Date: 20130305
  Receipt Date: 20130305
  Transmission Date: 20140127
  Serious: Yes (Hospitalization, Disabling, Other)
  Sender: FDA-Public Use
  Company Number: 163-21880-11112557

PATIENT
  Age: 75 Year
  Sex: Male
  Weight: 83.92 kg

DRUGS (12)
  1. REVLIMID LENALIDOMIDE 5 MILLIGRAM, CAPSULES [Suspect]
     Indication: MYELODYSPLASTIC SYNDROME
     Dosage: REVLIMID LENALIDOMIDE 5 MILLIGRAM, CAPSULES  5 MG, DAILY FOR 21 DAYS EVERY 28 DAYS, PO
     Route: 048
     Dates: start: 20111010, end: 20111027
  2. PROZAC FLUOXETINE HYDROCHLORIDE [Concomitant]
  3. FLOMAX TAMSULOSIN HYDROCHLORIDE [Concomitant]
  4. ARANESP DARBEPOETIN ALFA [Concomitant]
  5. IRON IRON [Concomitant]
  6. ASPIRIN LOW DOSE ACETYLSALICYLIC ACID [Concomitant]
  7. LOSARTAN POTASSIUM LOSARTAN POTASSIUM [Concomitant]
  8. STOOL SOFTENER DOCUSATE SODIUM [Concomitant]
  9. LASIX FUROSEMIDE [Concomitant]
  10. HUMIRA PEN ADALIMUMAB [Concomitant]
  11. HYDROCODONE-APAP PROCET /USA/ [Concomitant]
  12. K DUR POTASSIUM CHLORIDE [Concomitant]

REACTIONS (6)
  - Pneumonia [None]
  - Sepsis [None]
  - Myelodysplastic syndrome [None]
  - Disease progression [None]
  - Platelet count decreased [None]
  - Ocular hyperaemia [None]
